FAERS Safety Report 18189841 (Version 2)
Quarter: 2020Q4

REPORT INFORMATION
  Report Type: Spontaneous
  Country: US (occurrence: US)
  Receive Date: 20200825
  Receipt Date: 20201217
  Transmission Date: 20210113
  Serious: No
  Sender: FDA-Public Use
  Company Number: US-SA-2020SA225329

PATIENT

DRUGS (1)
  1. DUPIXENT [Suspect]
     Active Substance: DUPILUMAB
     Dosage: 300 MG OTHER
     Route: 058
     Dates: start: 201909

REACTIONS (6)
  - Bone pain [Unknown]
  - Product dose omission issue [Unknown]
  - Product dose omission in error [Unknown]
  - Bronchitis [Not Recovered/Not Resolved]
  - Sinus disorder [Not Recovered/Not Resolved]
  - Dyspnoea [Not Recovered/Not Resolved]

NARRATIVE: CASE EVENT DATE: 20200821
